FAERS Safety Report 18655853 (Version 2)
Quarter: 2021Q4

REPORT INFORMATION
  Report Type: Spontaneous
  Country: US (occurrence: US)
  Receive Date: 20201223
  Receipt Date: 20211021
  Transmission Date: 20220303
  Serious: Yes (Other)
  Sender: FDA-Public Use
  Company Number: US-GILEAD-2020-0509273

PATIENT
  Age: 45 Year
  Sex: Male
  Weight: 70.3 kg

DRUGS (7)
  1. TRUVADA [Suspect]
     Active Substance: EMTRICITABINE\TENOFOVIR DISOPROXIL FUMARATE
     Indication: HIV infection
     Dosage: UNK
     Route: 048
     Dates: start: 2005
  2. TRUVADA [Suspect]
     Active Substance: EMTRICITABINE\TENOFOVIR DISOPROXIL FUMARATE
     Dosage: UNK
     Route: 048
     Dates: start: 20050902, end: 20170629
  3. DESCOVY [Concomitant]
     Active Substance: EMTRICITABINE\TENOFOVIR ALAFENAMIDE FUMARATE
     Indication: HIV infection
  4. LEXIVA [Concomitant]
     Active Substance: FOSAMPRENAVIR CALCIUM
     Indication: HIV infection
  5. NORVIR [Concomitant]
     Active Substance: RITONAVIR
     Indication: HIV infection
  6. SYMTUZA [Concomitant]
     Active Substance: COBICISTAT\DARUNAVIR\EMTRICITABINE\TENOFOVIR ALAFENAMIDE
     Indication: HIV infection
  7. FOLIC ACID [Concomitant]
     Active Substance: FOLIC ACID
     Indication: Skeletal injury

REACTIONS (13)
  - Osteoporosis [Unknown]
  - Osteonecrosis [Not Recovered/Not Resolved]
  - Emotional distress [Unknown]
  - Osteopenia [Not Recovered/Not Resolved]
  - Osteoarthritis [Unknown]
  - Thermal burn [Not Recovered/Not Resolved]
  - Anhedonia [Unknown]
  - Hypertension [Not Recovered/Not Resolved]
  - Bone demineralisation [Unknown]
  - Anxiety [Unknown]
  - Depression [Unknown]
  - Anaemia [Not Recovered/Not Resolved]
  - Pain [Unknown]

NARRATIVE: CASE EVENT DATE: 20060101
